FAERS Safety Report 4645010-4 (Version None)
Quarter: 2005Q2

REPORT INFORMATION
  Report Type: 
  Country: None (occurrence: None)
  Receive Date: 20050426
  Receipt Date: 20050121
  Transmission Date: 20051028
  Serious: Yes (Hospitalization, Disabling)
  Sender: FDA-Public Use
  Company Number: US-ROCHE-393478

PATIENT
  Sex: Female
  Weight: 58.1 kg

DRUGS (4)
  1. ACCUTANE [Suspect]
     Route: 048
     Dates: start: 19991006, end: 19991108
  2. ACCUTANE [Suspect]
     Route: 048
     Dates: start: 19991108, end: 20000228
  3. ACCUTANE [Suspect]
     Route: 048
     Dates: start: 20000228
  4. ORTHO TRI-CYCLEN [Concomitant]
     Route: 048

REACTIONS (36)
  - ACNE [None]
  - ALANINE AMINOTRANSFERASE INCREASED [None]
  - ALOPECIA [None]
  - ALPHA HAEMOLYTIC STREPTOCOCCAL INFECTION [None]
  - ANAEMIA [None]
  - ASPARTATE AMINOTRANSFERASE INCREASED [None]
  - BACILLUS INFECTION [None]
  - BLOOD ALKALINE PHOSPHATASE DECREASED [None]
  - COLITIS [None]
  - COSTOCHONDRITIS [None]
  - CROHN'S DISEASE [None]
  - DEPRESSION [None]
  - DRUG INEFFECTIVE [None]
  - ENTEROCOCCAL INFECTION [None]
  - ESCHERICHIA INFECTION [None]
  - GALACTOSE INTOLERANCE [None]
  - GASTROINTESTINAL DISORDER [None]
  - HAEMORRHOIDS [None]
  - HERPES SIMPLEX [None]
  - ILEITIS [None]
  - INFLAMMATORY BOWEL DISEASE [None]
  - INSOMNIA [None]
  - INTESTINAL HAEMORRHAGE [None]
  - KLEBSIELLA INFECTION [None]
  - MENORRHAGIA [None]
  - MENSTRUATION IRREGULAR [None]
  - MULTI-ORGAN DISORDER [None]
  - PALPITATIONS [None]
  - RECTAL HAEMORRHAGE [None]
  - SCAR [None]
  - SKIN INFECTION [None]
  - SMEAR CERVIX ABNORMAL [None]
  - TACHYCARDIA [None]
  - THROAT TIGHTNESS [None]
  - VISUAL ACUITY REDUCED [None]
  - WEIGHT DECREASED [None]
